FAERS Safety Report 6449979-7 (Version None)
Quarter: 2009Q4

REPORT INFORMATION
  Report Type: 
  Country: None (occurrence: None)
  Receive Date: 20091120
  Receipt Date: 20091120
  Transmission Date: 20100525
  Serious: Yes (Other)
  Sender: FDA-Public Use
  Company Number: None

PATIENT
  Age: 6 Year
  Sex: Male
  Weight: 22.6799 kg

DRUGS (2)
  1. SINGULAIR [Suspect]
     Indication: ASTHMA
     Dosage: CHEW 1 TAB AT BEDTIME ONCE A DAY PO
     Route: 048
     Dates: start: 20050511, end: 20091014
  2. SINGULAIR [Suspect]
     Indication: HYPERSENSITIVITY
     Dosage: CHEW 1 TAB AT BEDTIME ONCE A DAY PO
     Route: 048
     Dates: start: 20050511, end: 20091014

REACTIONS (10)
  - ABNORMAL DREAMS [None]
  - ENURESIS [None]
  - HALLUCINATION [None]
  - HYPOPHAGIA [None]
  - NIGHTMARE [None]
  - PSYCHOMOTOR HYPERACTIVITY [None]
  - RESTLESSNESS [None]
  - SCREAMING [None]
  - SKIN DISCOLOURATION [None]
  - SLEEP DISORDER [None]
